FAERS Safety Report 6579576-4 (Version None)
Quarter: 2010Q1

REPORT INFORMATION
  Report Type: 
  Country: None (occurrence: None)
  Receive Date: 20100212
  Receipt Date: 20100201
  Transmission Date: 20100710
  Serious: Yes (Other)
  Sender: FDA-Public Use
  Company Number: US-PFIZER INC-2010014107

PATIENT
  Sex: Female
  Weight: 65.76 kg

DRUGS (1)
  1. ZITHROMAX [Suspect]
     Indication: GINGIVAL INFECTION
     Dates: start: 20100128, end: 20100131

REACTIONS (1)
  - PHARYNGEAL OEDEMA [None]
